FAERS Safety Report 23626884 (Version 2)
Quarter: 2024Q1

REPORT INFORMATION
  Report Type: Spontaneous
  Country: PT (occurrence: PT)
  Receive Date: 20240313
  Receipt Date: 20240319
  Transmission Date: 20240410
  Serious: Yes (Hospitalization, Disabling, Other)
  Sender: FDA-Public Use
  Company Number: PT-Zentiva-2024-ZT-000251

PATIENT
  Age: 43 Year
  Sex: Male

DRUGS (17)
  1. SERTRALINE [Suspect]
     Active Substance: SERTRALINE HYDROCHLORIDE
     Indication: Obsessive-compulsive symptom
     Dosage: 100 MILLIGRAM, QD (DOSAGE UNTIL ADVERSE REACTIONS)
     Route: 065
  2. SERTRALINE [Suspect]
     Active Substance: SERTRALINE HYDROCHLORIDE
     Dosage: 75 MILLIGRAM, QD (DOSAGE AFTER ADVERSE REACTIONS)
     Route: 065
  3. CLOZAPINE [Suspect]
     Active Substance: CLOZAPINE
     Indication: Schizophrenia
     Dosage: 300 MILLIGRAM, QD
     Route: 065
  4. CLOZAPINE [Suspect]
     Active Substance: CLOZAPINE
     Indication: Obsessive-compulsive symptom
     Dosage: SLOW TITRATION WITH FREQUENT DOSAGES
     Route: 065
  5. OLANZAPINE [Concomitant]
     Active Substance: OLANZAPINE
     Indication: Schizophrenia
     Dosage: 10 MILLIGRAM, DAILY, TAKEN ONCE IN THE PREVIOUS MONTH
     Route: 065
  6. OLANZAPINE [Concomitant]
     Active Substance: OLANZAPINE
     Indication: Obsessive-compulsive symptom
  7. FLUVOXAMINE [Concomitant]
     Active Substance: FLUVOXAMINE
     Indication: Obsessive-compulsive symptom
     Dosage: 300 MILLIGRAM, TAKEN ONCE IN THE PREVIOUS MONTH
     Route: 065
  8. FLUVOXAMINE [Concomitant]
     Active Substance: FLUVOXAMINE
     Indication: Schizophrenia
  9. PALIPERIDONE PALMITATE [Concomitant]
     Active Substance: PALIPERIDONE PALMITATE
     Indication: Obsessive-compulsive symptom
     Dosage: 150 MILLIGRAM, MONTHLY
     Route: 065
  10. PALIPERIDONE PALMITATE [Concomitant]
     Active Substance: PALIPERIDONE PALMITATE
     Indication: Schizophrenia
  11. LORAZEPAM [Concomitant]
     Active Substance: LORAZEPAM
     Indication: Product used for unknown indication
     Dosage: 2.5 MILLIGRAM, QD
     Route: 065
  12. BIPERIDEN [Concomitant]
     Active Substance: BIPERIDEN
     Indication: Obsessive-compulsive symptom
     Dosage: 4 MILLIGRAM, TAKEN ONCE IN THE PREVIOUS MONTH
     Route: 065
  13. BIPERIDEN [Concomitant]
     Active Substance: BIPERIDEN
     Indication: Schizophrenia
  14. ARIPIPRAZOLE [Concomitant]
     Active Substance: ARIPIPRAZOLE
     Indication: Obsessive-compulsive symptom
     Dosage: 5 MILLIGRAM
     Route: 065
  15. RISPERIDONE [Concomitant]
     Active Substance: RISPERIDONE
     Indication: Schizophrenia
     Dosage: 2 MILLIGRAM
     Route: 065
  16. HALOPERIDOL DECANOATE [Concomitant]
     Active Substance: HALOPERIDOL DECANOATE
     Indication: Obsessive-compulsive symptom
     Dosage: 50 MILLIGRAM, QD, TAKEN ONCE IN THE PREVIOUS MONTH
     Route: 065
  17. HALOPERIDOL DECANOATE [Concomitant]
     Active Substance: HALOPERIDOL DECANOATE
     Indication: Schizophrenia

REACTIONS (9)
  - Erectile dysfunction [Recovered/Resolved]
  - Anorgasmia [Recovered/Resolved]
  - Salivary hypersecretion [Recovering/Resolving]
  - Antipsychotic drug level increased [Recovering/Resolving]
  - Antipsychotic drug level above therapeutic [Recovering/Resolving]
  - Obsessive-compulsive symptom [Recovering/Resolving]
  - Sedation [Recovered/Resolved]
  - Abnormal behaviour [Recovered/Resolved]
  - Drug resistance [Unknown]
